FAERS Safety Report 21410408 (Version 1)
Quarter: 2022Q4

REPORT INFORMATION
  Report Type: Spontaneous
  Country: US (occurrence: None)
  Receive Date: 20221003
  Receipt Date: 20221003
  Transmission Date: 20230112
  Serious: No
  Sender: FDA-Public Use
  Company Number: None

PATIENT
  Age: 69 Year
  Sex: Female
  Weight: 76.66 kg

DRUGS (1)
  1. EVENITY [Suspect]
     Active Substance: ROMOSOZUMAB-AQQG
     Indication: Senile osteoporosis
     Dosage: INJECT 210MG (2 SYRINGES) SUBCUTANEOUSLY ONCE A MONTH  AS DIRECTED
     Route: 058
     Dates: start: 202110

REACTIONS (3)
  - Hernia repair [None]
  - Atrial fibrillation [None]
  - Postoperative wound infection [None]
